FAERS Safety Report 6317192-X (Version None)
Quarter: 2009Q3

REPORT INFORMATION
  Report Type: 
  Country: None (occurrence: None)
  Receive Date: 20090820
  Receipt Date: 20090812
  Transmission Date: 20100115
  Serious: Yes (Hospitalization)
  Sender: FDA-Public Use
  Company Number: US-AMGEN-KDL350366

PATIENT
  Sex: Female
  Weight: 72.6 kg

DRUGS (5)
  1. ENBREL [Suspect]
     Indication: MIXED CONNECTIVE TISSUE DISEASE
     Route: 058
     Dates: start: 20060915
  2. METHOTREXATE [Concomitant]
     Route: 048
  3. KLONOPIN [Concomitant]
  4. PREDNISONE [Concomitant]
  5. XANAX [Concomitant]

REACTIONS (6)
  - FEELING ABNORMAL [None]
  - INJECTION SITE HAEMATOMA [None]
  - INJECTION SITE PAIN [None]
  - INJECTION SITE PRURITUS [None]
  - MENTAL DISORDER [None]
  - STRESS [None]
